FAERS Safety Report 4970382-0 (Version None)
Quarter: 2006Q2

REPORT INFORMATION
  Report Type: 
  Country: None (occurrence: None)
  Receive Date: 20060412
  Receipt Date: 20060406
  Transmission Date: 20061013
  Serious: Yes (Other)
  Sender: FDA-Public Use
  Company Number: 2005112117S

PATIENT
  Age: 31 Year
  Sex: Female

DRUGS (8)
  1. AMOXICILLIN [Suspect]
     Indication: BRONCHITIS
  2. SUDAFED 12 HOUR [Suspect]
     Indication: RHINITIS ALLERGIC
  3. METFORMIN [Suspect]
     Indication: POLYCYSTIC OVARIES
     Dosage: 500MG THREE TIMES PER DAY
     Dates: start: 19960101
  4. ASPIRIN [Suspect]
     Indication: PROPHYLAXIS
  5. TYLENOL (CAPLET) [Suspect]
     Indication: HEADACHE
  6. ROBITUSSIN [Suspect]
     Indication: RESPIRATORY TRACT CONGESTION
  7. TYLENOL W/ CODEINE NO. 3 [Suspect]
     Indication: TOOTHACHE
  8. ZITHROMAX [Suspect]
     Indication: BRONCHITIS

REACTIONS (2)
  - ANAEMIA [None]
  - DRUG EXPOSURE DURING PREGNANCY [None]
